FAERS Safety Report 7985683-1 (Version None)
Quarter: 2011Q4

REPORT INFORMATION
  Report Type: 
  Country: None (occurrence: None)
  Receive Date: 20111216
  Receipt Date: 20111212
  Transmission Date: 20120403
  Serious: Yes (Hospitalization, Other)
  Sender: FDA-Public Use
  Company Number: DE-ABBOTT-11P-062-0882797-00

PATIENT
  Weight: 100 kg

DRUGS (1)
  1. HUMIRA [Suspect]
     Indication: RHEUMATOID ARTHRITIS
     Route: 058
     Dates: end: 20111104

REACTIONS (4)
  - MYELITIS TRANSVERSE [None]
  - PARAPARESIS [None]
  - ASTROCYTOMA [None]
  - SPINAL CORD DISORDER [None]
